FAERS Safety Report 9788867 (Version 2)
Quarter: 2014Q1

REPORT INFORMATION
  Report Type: Report from Study
  Country: JP (occurrence: JP)
  Receive Date: 20131230
  Receipt Date: 20140204
  Transmission Date: 20141002
  Serious: Yes (Other)
  Sender: FDA-Public Use
  Company Number: JP-GLAXOSMITHKLINE-B0948936A

PATIENT
  Age: 79 Year
  Sex: Female
  Weight: 53 kg

DRUGS (2)
  1. VOTRIENT 200MG [Suspect]
     Indication: LEIOMYOSARCOMA
     Dosage: 200MG PER DAY
     Route: 048
     Dates: start: 20130311, end: 20130608
  2. VOTRIENT 200MG [Suspect]
     Indication: LEIOMYOSARCOMA
     Route: 048
     Dates: start: 20130609, end: 20130725

REACTIONS (6)
  - Pneumonia [Recovered/Resolved]
  - Hypertension [Recovered/Resolved]
  - Proteinuria [Recovered/Resolved]
  - Malaise [Recovered/Resolved]
  - Atrioventricular block second degree [Not Recovered/Not Resolved]
  - Decreased appetite [Recovered/Resolved]
